FAERS Safety Report 23877156 (Version 2)
Quarter: 2024Q2

REPORT INFORMATION
  Report Type: Spontaneous
  Country: US (occurrence: None)
  Receive Date: 20240521
  Receipt Date: 20240613
  Transmission Date: 20240716
  Serious: Yes (Death)
  Sender: FDA-Public Use
  Company Number: US-USWM, LLC-UWM202405-000043

PATIENT
  Age: 2 Year
  Sex: Female

DRUGS (10)
  1. IWILFIN [Suspect]
     Active Substance: EFLORNITHINE HYDROCHLORIDE
     Indication: Neuroblastoma
     Dosage: 384MG
     Dates: start: 20240209, end: 20240503
  2. OXYCODONE [Concomitant]
     Active Substance: OXYCODONE\OXYCODONE HYDROCHLORIDE
     Dosage: 10MG/0.5 ML
  3. MIRALAX [Concomitant]
     Active Substance: POLYETHYLENE GLYCOL 3350
     Dosage: NOT PROVIDED
  4. Magic Mouthwash Compound [Concomitant]
     Dosage: NOT PROVIDED
  5. Dinutux [Concomitant]
     Indication: Neuroblastoma
     Dosage: NOT PROVIDED
     Dates: start: 202310, end: 202401
  6. Irino/Temo/Dinutux [Concomitant]
     Indication: Neuroblastoma
     Dosage: 2 CYCLES
     Dates: start: 202310
  7. Topo/Cyclo/Dinutux [Concomitant]
     Indication: Neuroblastoma
     Dosage: 2 CYCLES
     Dates: start: 202311
  8. Topo/Cyclo/Dinutux [Concomitant]
     Dosage: 2 CYCLES
     Dates: start: 202312
  9. CISPLATIN\ETOPOSIDE [Concomitant]
     Active Substance: CISPLATIN\ETOPOSIDE
     Indication: Neuroblastoma
     Dosage: 1 CYCLE
     Dates: start: 202401
  10. CYCLOPHOSPHAMIDE\DOXORUBICIN\PREDNISONE\VINCRISTINE [Concomitant]
     Active Substance: CYCLOPHOSPHAMIDE\DOXORUBICIN\PREDNISONE\VINCRISTINE
     Indication: Proton radiation therapy
     Dosage: NOT PROVIDED

REACTIONS (1)
  - Death [Fatal]

NARRATIVE: CASE EVENT DATE: 20240503
